FAERS Safety Report 17540686 (Version 2)
Quarter: 2020Q2

REPORT INFORMATION
  Report Type: Report from Study
  Country: AU (occurrence: AU)
  Receive Date: 20200313
  Receipt Date: 20200407
  Transmission Date: 20200713
  Serious: Yes (Death, Other)
  Sender: FDA-Public Use
  Company Number: AU-TOLMAR, INC.-19AU000814

PATIENT
  Age: 67 Year
  Sex: Male

DRUGS (1)
  1. ELIGARD [Suspect]
     Active Substance: LEUPROLIDE ACETATE
     Indication: PROSTATE CANCER
     Dosage: 22.5 MG, Q 3 MONTH
     Route: 058
     Dates: start: 20170602

REACTIONS (7)
  - Death [Fatal]
  - Cancer pain [Unknown]
  - Gait inability [Unknown]
  - Metastatic neoplasm [Unknown]
  - Memory impairment [Unknown]
  - Metastases to spine [Not Recovered/Not Resolved]
  - Depressed mood [Unknown]

NARRATIVE: CASE EVENT DATE: 201912
